FAERS Safety Report 11175884 (Version 1)
Quarter: 2015Q2

REPORT INFORMATION
  Report Type: Report from Study
  Country: HU (occurrence: HU)
  Receive Date: 20150609
  Receipt Date: 20150609
  Transmission Date: 20150821
  Serious: Yes (Hospitalization)
  Sender: FDA-Public Use
  Company Number: HU-ABBVIE-15P-076-1403732-00

PATIENT
  Age: 64 Year
  Sex: Female

DRUGS (5)
  1. EUTHYROX [Concomitant]
     Active Substance: LEVOTHYROXINE SODIUM
     Indication: THYROID FUNCTION TEST ABNORMAL
     Route: 048
  2. RIVOTRIL [Concomitant]
     Active Substance: CLONAZEPAM
     Indication: AFFECTIVE DISORDER
     Route: 048
  3. NITROMINT [Concomitant]
     Indication: MYOCARDIAL ISCHAEMIA
     Route: 060
  4. DUODOPA [Suspect]
     Active Substance: CARBIDOPA\LEVODOPA
     Indication: PARKINSON^S DISEASE
     Dosage: MORNING:3.5ML; CONTINUOUS: 1.9ML/H;EXTRA: 1ML
     Route: 050
     Dates: start: 20131118
  5. CLOPIDOGREL [Concomitant]
     Active Substance: CLOPIDOGREL BISULFATE
     Indication: ANTIPLATELET THERAPY
     Route: 048

REACTIONS (3)
  - Stoma site discharge [Recovering/Resolving]
  - Muscular weakness [Recovering/Resolving]
  - Stoma site granuloma [Not Recovered/Not Resolved]

NARRATIVE: CASE EVENT DATE: 201502
